FAERS Safety Report 13103221 (Version 1)
Quarter: 2017Q1

REPORT INFORMATION
  Report Type: Spontaneous
  Country: US (occurrence: US)
  Receive Date: 20170110
  Receipt Date: 20170110
  Transmission Date: 20170428
  Serious: Yes (Death)
  Sender: FDA-Public Use
  Company Number: US-INSYS THERAPEUTICS, INC-INS201612-000841

PATIENT
  Age: 22 Year
  Sex: Male

DRUGS (4)
  1. COCAINE [Suspect]
     Active Substance: COCAINE
     Indication: COMPLETED SUICIDE
  2. HEROIN [Suspect]
     Active Substance: DIACETYLMORPHINE
     Indication: COMPLETED SUICIDE
  3. FENTANYL. [Suspect]
     Active Substance: FENTANYL
     Indication: COMPLETED SUICIDE
     Route: 065
  4. AMFETAMINE [Suspect]
     Active Substance: AMPHETAMINE
     Indication: COMPLETED SUICIDE

REACTIONS (1)
  - Toxicity to various agents [Fatal]
